FAERS Safety Report 15493524 (Version 1)
Quarter: 2018Q4

REPORT INFORMATION
  Report Type: Spontaneous
  Country: US (occurrence: US)
  Receive Date: 20181012
  Receipt Date: 20181012
  Transmission Date: 20190205
  Serious: Yes (Other)
  Sender: FDA-Public Use
  Company Number: None

PATIENT
  Age: 70 Year
  Sex: Female
  Weight: 87.1 kg

DRUGS (1)
  1. PACLITAXEL. [Suspect]
     Active Substance: PACLITAXEL
     Indication: BREAST CANCER
     Dosage: ?          OTHER FREQUENCY:3 WEEKS ON 1 OFF;?
     Dates: start: 20180711

REACTIONS (3)
  - Flushing [None]
  - Hyperhidrosis [None]
  - Hypersensitivity [None]

NARRATIVE: CASE EVENT DATE: 20181005
